FAERS Safety Report 9926105 (Version 1)
Quarter: 2014Q1

REPORT INFORMATION
  Report Type: Spontaneous
  Country: US (occurrence: US)
  Receive Date: 20140226
  Receipt Date: 20140226
  Transmission Date: 20141002
  Serious: Yes (Hospitalization, Other)
  Sender: FDA-Public Use
  Company Number: US-ROXANE LABORATORIES, INC.-2014-RO-00266RO

PATIENT
  Sex: Female

DRUGS (6)
  1. BALSALAZIDE [Suspect]
     Indication: COLITIS ULCERATIVE
     Dosage: 6750 MG
     Route: 048
     Dates: end: 201305
  2. BALSALAZIDE [Suspect]
     Dosage: 6750 MG
     Route: 048
     Dates: start: 201308
  3. DIAZEPAM [Concomitant]
     Route: 065
  4. CLONIDINE [Concomitant]
     Route: 065
  5. CALCIUM [Concomitant]
     Route: 065
  6. VITAMIN D [Concomitant]
     Route: 065

REACTIONS (5)
  - Pelvic fracture [Recovered/Resolved]
  - Upper limb fracture [Recovered/Resolved]
  - Fall [Recovered/Resolved]
  - Clostridium difficile infection [Unknown]
  - Swelling [Not Recovered/Not Resolved]
